FAERS Safety Report 12612187 (Version 1)
Quarter: 2016Q3

REPORT INFORMATION
  Report Type: Spontaneous
  Country: US (occurrence: US)
  Receive Date: 20160801
  Receipt Date: 20160801
  Transmission Date: 20161109
  Serious: Yes (Other)
  Sender: FDA-Public Use
  Company Number: PHHY2016US104005

PATIENT
  Age: 24 Year
  Sex: Female

DRUGS (3)
  1. AZATHIOPRINE. [Suspect]
     Active Substance: AZATHIOPRINE
     Indication: AUTOIMMUNE HEPATITIS
     Route: 065
  2. TACROLIMUS. [Suspect]
     Active Substance: TACROLIMUS
     Indication: AUTOIMMUNE HEPATITIS
     Dosage: 3 MG, QD
     Route: 065
  3. PREDNISONE. [Suspect]
     Active Substance: PREDNISONE
     Indication: AUTOIMMUNE HEPATITIS
     Dosage: UNK
     Route: 065

REACTIONS (1)
  - Drug resistance [Unknown]
